FAERS Safety Report 5017587-0 (Version None)
Quarter: 2006Q2

REPORT INFORMATION
  Report Type: 
  Country: None (occurrence: None)
  Receive Date: 20060601
  Receipt Date: 20060601
  Transmission Date: 20061013
  Serious: Yes (Death)
  Sender: FDA-Public Use
  Company Number: None

PATIENT
  Sex: Male
  Weight: 90.7194 kg

DRUGS (3)
  1. CAPECITABINE [Suspect]
     Indication: COLON CANCER
     Dosage: 42000.00 PO DAILY
     Route: 048
     Dates: start: 20060328, end: 20060508
  2. OXALIPLATIN [Suspect]
     Indication: COLON CANCER
     Dosage: 85.00 IV D1 + D15
     Route: 042
     Dates: start: 20060328, end: 20060425
  3. AVASTIN [Suspect]
     Indication: COLON CANCER
     Dosage: 5.00 IV D1 + D15
     Route: 042
     Dates: start: 20060328, end: 20060425

REACTIONS (3)
  - ABDOMINAL PAIN [None]
  - DIARRHOEA [None]
  - TREATMENT NONCOMPLIANCE [None]
